FAERS Safety Report 6501712-6 (Version None)
Quarter: 2009Q4

REPORT INFORMATION
  Report Type: 
  Country: None (occurrence: None)
  Receive Date: 20091216
  Receipt Date: 20091203
  Transmission Date: 20100525
  Serious: Yes (Other)
  Sender: FDA-Public Use
  Company Number: US-JNJFOC-20091202002

PATIENT
  Age: 60 Year
  Sex: Male

DRUGS (8)
  1. INFLIXIMAB [Suspect]
     Indication: RHEUMATOID ARTHRITIS
     Dosage: FOR 1 YEAR
     Route: 042
  2. AZATHIOPRINE [Concomitant]
  3. PREDNISOLONE [Concomitant]
  4. DICLOFENAC [Concomitant]
  5. OMEPRAZOLE [Concomitant]
  6. DIHYDROCODEINE BITARTRATE INJ [Concomitant]
  7. PARACETAMOL [Concomitant]
  8. ALBUTEROL [Concomitant]

REACTIONS (1)
  - SUPRAVENTRICULAR TACHYCARDIA [None]
